FAERS Safety Report 6030501-4 (Version None)
Quarter: 2009Q1

REPORT INFORMATION
  Report Type: 
  Country: None (occurrence: None)
  Receive Date: 20090106
  Receipt Date: 20090106
  Transmission Date: 20090719
  Serious: Yes (Hospitalization)
  Sender: FDA-Public Use
  Company Number: None

PATIENT
  Sex: Male
  Weight: 79 kg

DRUGS (3)
  1. CLOFARABINE [Suspect]
     Indication: STEM CELL TRANSPLANT
     Dosage: 66 MG DAILY IV DRIP
     Route: 041
     Dates: start: 20081023, end: 20081027
  2. CAMPATH [Suspect]
     Indication: STEM CELL TRANSPLANT
     Dosage: 20 MG DAILY IV DRIP
     Route: 041
     Dates: start: 20081023, end: 20081027
  3. MELPHALAN [Suspect]
     Dosage: 308 MG DAILY IV DRIP
     Route: 041
     Dates: start: 20081028, end: 20081028

REACTIONS (12)
  - ABDOMINAL PAIN [None]
  - ASTHENIA [None]
  - BLOOD GLUCOSE INCREASED [None]
  - BURNING SENSATION [None]
  - CHEST PAIN [None]
  - CONSTIPATION [None]
  - HEADACHE [None]
  - NEUTROPENIA [None]
  - PLATELET COUNT DECREASED [None]
  - POLLAKIURIA [None]
  - SEPTIC SHOCK [None]
  - TACHYCARDIA [None]
